FAERS Safety Report 16543899 (Version 1)
Quarter: 2019Q3

REPORT INFORMATION
  Report Type: Spontaneous
  Country: PE (occurrence: PE)
  Receive Date: 20190709
  Receipt Date: 20190709
  Transmission Date: 20191004
  Serious: Yes (Death, Hospitalization, Other)
  Sender: FDA-Public Use
  Company Number: PE-PFIZER INC-2019285714

PATIENT
  Age: 45 Year
  Sex: Male
  Weight: 58.5 kg

DRUGS (12)
  1. BEDAQUILINE [Suspect]
     Active Substance: BEDAQUILINE
     Dosage: 200 MG, UNK (TIW (THREE TIMES A WEEK)
     Route: 048
     Dates: start: 2018, end: 20190220
  2. DELAMANID [Suspect]
     Active Substance: DELAMANID
     Indication: TUBERCULOSIS
     Dosage: 200 MG, 1X/DAY (QD (ONCE DAILY))
     Route: 048
     Dates: start: 20180824, end: 20190423
  3. DELAMANID [Suspect]
     Active Substance: DELAMANID
     Dosage: UNK (EXCEEDED 24 WEEKS )
     Dates: start: 20181010
  4. ETHIONAMIDE [Suspect]
     Active Substance: ETHIONAMIDE
     Indication: TUBERCULOSIS
     Dosage: 750 MG, 1X/DAY (QD (ONCE DAILY))
     Route: 048
     Dates: start: 20180824
  5. CLOFAZIMINE [Suspect]
     Active Substance: CLOFAZIMINE
     Indication: TUBERCULOSIS
     Dosage: 200 MG, 1X/DAY (QD (ONCE DAILY))
     Dates: start: 20180824, end: 2018
  6. LOPINAVIR/RITONAVIR [Concomitant]
     Indication: HIV INFECTION
     Dosage: UNK
     Dates: start: 20180920, end: 20190528
  7. ABACAVIR. [Concomitant]
     Active Substance: ABACAVIR
     Indication: HIV INFECTION
     Dosage: UNK
     Dates: start: 20180920, end: 20190528
  8. CLOFAZIMINE [Suspect]
     Active Substance: CLOFAZIMINE
     Dosage: 100 MG, 1X/DAY (QD (ONCE DAILY))
     Route: 048
     Dates: start: 2018
  9. LINEZOLID. [Suspect]
     Active Substance: LINEZOLID
     Indication: TUBERCULOSIS
     Dosage: 600 MG, 1X/DAY (QD (ONCE DAILY))
     Route: 048
     Dates: start: 20180824
  10. BEDAQUILINE [Suspect]
     Active Substance: BEDAQUILINE
     Indication: TUBERCULOSIS
     Dosage: 400 MG, 1X/DAY (QD (ONCE DAILY))
     Route: 048
     Dates: start: 20180824, end: 2018
  11. LAMIVUDINE. [Concomitant]
     Active Substance: LAMIVUDINE
     Indication: HIV INFECTION
     Dosage: UNK
     Dates: start: 20180920, end: 20190528
  12. CYCLOSERINE. [Suspect]
     Active Substance: CYCLOSERINE
     Indication: TUBERCULOSIS
     Dosage: 750 MG, 1X/DAY
     Route: 048
     Dates: start: 20180824

REACTIONS (3)
  - Acute respiratory failure [Fatal]
  - Incorrect product administration duration [Unknown]
  - Treatment noncompliance [Unknown]

NARRATIVE: CASE EVENT DATE: 20181010
